FAERS Safety Report 4886924-X (Version None)
Quarter: 2006Q1

REPORT INFORMATION
  Report Type: 
  Country: None (occurrence: None)
  Receive Date: 20060118
  Receipt Date: 20060104
  Transmission Date: 20060701
  Serious: Yes (Hospitalization, Other)
  Sender: FDA-Public Use
  Company Number: USA041285216

PATIENT
  Age: 60 Year
  Sex: Male

DRUGS (3)
  1. CIALIS [Suspect]
     Indication: ERECTILE DYSFUNCTION
     Dosage: 20 MG, ORAL
     Route: 048
     Dates: start: 20040906
  2. ASPIRIN [Concomitant]
  3. ASA (ASPIRIN (ACETYLSALICYLIC ACID) TABLET [Concomitant]

REACTIONS (2)
  - HAEMATOCHEZIA [None]
  - RECTAL HAEMORRHAGE [None]
